FAERS Safety Report 18153026 (Version 4)
Quarter: 2020Q3

REPORT INFORMATION
  Report Type: Report from Study
  Country: US (occurrence: US)
  Receive Date: 20200814
  Receipt Date: 20200923
  Transmission Date: 20201103
  Serious: Yes (Death)
  Sender: FDA-Public Use
  Company Number: US-BAXTER-2020BAX016463

PATIENT
  Age: 2 Year
  Sex: Female

DRUGS (29)
  1. DOXIL [Suspect]
     Active Substance: DOXORUBICIN HYDROCHLORIDE
     Indication: CHEMOTHERAPY
     Dosage: FIRST COURSE
     Route: 065
     Dates: start: 20191217
  2. MESNEX [Suspect]
     Active Substance: MESNA
     Dosage: CONSOLIDATION HSCT 1, FREQUENCY: PER ROADMAP
     Route: 065
     Dates: start: 20200709, end: 20200712
  3. CRIZOTINIB [Suspect]
     Active Substance: CRIZOTINIB
     Indication: NEUROBLASTOMA
     Dosage: FIRST COURSE
     Route: 065
     Dates: start: 20191217
  4. DOXIL [Suspect]
     Active Substance: DOXORUBICIN HYDROCHLORIDE
     Dosage: LAST ADMINISTERED DATE, TOTAL DOSE ADMINISTERED THIS COURSE: 0 MG
     Route: 065
     Dates: end: 20200229
  5. CRIZOTINIB [Suspect]
     Active Substance: CRIZOTINIB
     Dosage: LAST ADMINISTERED DATE, TOTAL DOSE ADMINISTERED THIS COURSE: 0 MG, UNSPECIFIED DOSE
     Route: 065
     Dates: end: 20200706
  6. G?CSF [Suspect]
     Active Substance: GRANULOCYTE COLONY-STIMULATING FACTOR NOS
     Indication: DRUG THERAPY
     Dosage: FIRST COURSE
     Route: 065
     Dates: start: 20191217
  7. ZINECARD [Suspect]
     Active Substance: DEXRAZOXANE HYDROCHLORIDE
     Dosage: INDUCTION CYCLE 4, FREQUENCY: PER ROADMAP
     Route: 065
     Dates: start: 20200228, end: 20200229
  8. THIOTEPA. [Suspect]
     Active Substance: THIOTEPA
     Dosage: LAST ADMINISTERED DATE, TOTAL DOSE ADMINISTERED THIS COURSE: 600 MG
     Route: 065
     Dates: end: 20200712
  9. CISPLATIN. [Suspect]
     Active Substance: CISPLATIN
     Indication: CHEMOTHERAPY
     Dosage: FIRST COURSE
     Route: 065
     Dates: start: 20191217
  10. ZINECARD [Suspect]
     Active Substance: DEXRAZOXANE HYDROCHLORIDE
     Indication: PROPHYLAXIS
     Dosage: FIRST COURSE
     Route: 065
     Dates: start: 20191217
  11. CISPLATIN. [Suspect]
     Active Substance: CISPLATIN
     Dosage: LAST ADMINISTERED DATE, TOTAL DOSE ADMINISTERED THIS COURSE: 0 MG
     Route: 065
     Dates: end: 20200329
  12. VP?16 [Suspect]
     Active Substance: ETOPOSIDE
     Indication: CHEMOTHERAPY
     Dosage: FIRST COURSE
     Route: 065
     Dates: start: 20191217
  13. DOXIL [Suspect]
     Active Substance: DOXORUBICIN HYDROCHLORIDE
     Dosage: INDUCTION CYCLE 4, FREQUENCY: PER ROADMAP
     Route: 065
     Dates: start: 20200228, end: 20200229
  14. VP?16 [Suspect]
     Active Substance: ETOPOSIDE
     Dosage: INDUCTION CYCLE 3?5, FREQUENCY: PER ROADMAP
     Route: 065
     Dates: start: 20200205, end: 20200329
  15. CYCLOPHOSPHAMIDE FOR INJECTION, USP [Suspect]
     Active Substance: CYCLOPHOSPHAMIDE
     Dosage: CONSOLIDATION HSCT 1, FREQUENCY: PER ROADMAP
     Route: 065
     Dates: start: 20200709, end: 20200712
  16. MESNEX [Suspect]
     Active Substance: MESNA
     Dosage: LAST ADMINISTERED DATE, TOTAL DOSE ADMINISTERED THIS COURSE: 3750 MG
     Route: 065
     Dates: end: 20200712
  17. CRIZOTINIB [Suspect]
     Active Substance: CRIZOTINIB
     Dosage: 430 MG/M2
     Route: 048
     Dates: start: 20200707, end: 20200707
  18. VINCRISTINE SULFATE. [Suspect]
     Active Substance: VINCRISTINE SULFATE
     Dosage: INDUCTION CYCLE 4, FREQUENCY: PER ROADMAP, LAST ADMINISTERED DATE, TOTAL DOSE ADMINISTERED THIS COUR
     Route: 065
     Dates: start: 20200228, end: 20200228
  19. THIOTEPA. [Suspect]
     Active Substance: THIOTEPA
     Dosage: CONSOLIDATION HSCT#1, FREQUENCY: PER ROADMAP
     Route: 065
     Dates: start: 20200707, end: 20200712
  20. VP?16 [Suspect]
     Active Substance: ETOPOSIDE
     Dosage: LAST ADMINISTERED DATE, TOTAL DOSE ADMINISTERED THIS COURSE: 0 MG
     Route: 065
     Dates: end: 20200329
  21. CYCLOPHOSPHAMIDE FOR INJECTION, USP [Suspect]
     Active Substance: CYCLOPHOSPHAMIDE
     Indication: CHEMOTHERAPY
     Dosage: FIRST COURSE
     Route: 065
     Dates: start: 20191217
  22. MESNEX [Suspect]
     Active Substance: MESNA
     Indication: PROPHYLAXIS
     Dosage: FIRST DOSE
     Route: 065
     Dates: start: 20191217
  23. ZINECARD [Suspect]
     Active Substance: DEXRAZOXANE HYDROCHLORIDE
     Dosage: LAST ADMINISTERED DATE, TOTAL DOSE ADMINISTERED THIS COURSE: 0 MG
     Route: 065
     Dates: end: 20200229
  24. CISPLATIN. [Suspect]
     Active Substance: CISPLATIN
     Dosage: INDUCTION CYCLE 2?5, FREQUENCY: PER ROADMAP
     Route: 065
     Dates: start: 20200113, end: 20200329
  25. CYCLOPHOSPHAMIDE FOR INJECTION, USP [Suspect]
     Active Substance: CYCLOPHOSPHAMIDE
     Dosage: LAST ADMINISTERED DATE, TOTAL DOSE ADMINISTERED THIS COURSE: 3000 MG
     Route: 065
     Dates: end: 20200712
  26. CRIZOTINIB [Suspect]
     Active Substance: CRIZOTINIB
     Indication: METASTATIC NEOPLASM
     Dosage: INDUCTION CYCLE 3, FREQUENCY: PER ROADMAP
     Route: 065
     Dates: start: 20200205, end: 20200706
  27. VINCRISTINE SULFATE. [Suspect]
     Active Substance: VINCRISTINE SULFATE
     Indication: CHEMOTHERAPY
     Dosage: FIRST COURSE
     Route: 065
     Dates: start: 20191217
  28. THIOTEPA. [Suspect]
     Active Substance: THIOTEPA
     Indication: CHEMOTHERAPY
     Dosage: FIRST COURSE
     Route: 065
     Dates: start: 20191217
  29. G?CSF [Suspect]
     Active Substance: GRANULOCYTE COLONY-STIMULATING FACTOR NOS
     Dosage: CONSOLIDATION HSCT#1, FREQUENCY: PER ROADMAP
     Route: 065
     Dates: start: 20200714, end: 20200715

REACTIONS (1)
  - Multiple organ dysfunction syndrome [Fatal]

NARRATIVE: CASE EVENT DATE: 20200715
